FAERS Safety Report 22096644 (Version 2)
Quarter: 2023Q2

REPORT INFORMATION
  Report Type: Spontaneous
  Country: US (occurrence: US)
  Receive Date: 20230315
  Receipt Date: 20230424
  Transmission Date: 20230721
  Serious: No
  Sender: FDA-Public Use
  Company Number: US-BIOGEN-2023BI01185110

PATIENT
  Age: 53 Year
  Sex: Female

DRUGS (1)
  1. TYSABRI [Suspect]
     Active Substance: NATALIZUMAB
     Indication: Multiple sclerosis
     Route: 050
     Dates: start: 20100223

REACTIONS (4)
  - Product dose omission issue [Unknown]
  - Arthropathy [Not Recovered/Not Resolved]
  - Multiple sclerosis relapse [Unknown]
  - Malaise [Unknown]

NARRATIVE: CASE EVENT DATE: 20230101
